FAERS Safety Report 15707130 (Version 2)
Quarter: 2019Q1

REPORT INFORMATION
  Report Type: Spontaneous
  Country: JP (occurrence: JP)
  Receive Date: 20181210
  Receipt Date: 20190220
  Transmission Date: 20190417
  Serious: Yes (Other)
  Sender: FDA-Public Use
  Company Number: JP-ROCHE-2227599

PATIENT
  Age: 72 Year
  Sex: Female
  Weight: 52 kg

DRUGS (6)
  1. ELCITONIN [Concomitant]
     Active Substance: ELCATONIN
     Indication: PRODUCT USED FOR UNKNOWN INDICATION
     Route: 058
     Dates: start: 20140804
  2. BONVIVA [Suspect]
     Active Substance: IBANDRONATE SODIUM
     Dosage: 6TH DOSE WAS ADMINISTERED
     Route: 042
     Dates: start: 20150306
  3. BONVIVA [Suspect]
     Active Substance: IBANDRONATE SODIUM
     Indication: OSTEOPOROSIS POSTMENOPAUSAL
     Dosage: 0.0333 MG
     Route: 042
     Dates: start: 20140811
  4. BONVIVA [Suspect]
     Active Substance: IBANDRONATE SODIUM
     Dosage: 6TH DOSE WAS ADMINISTERED
     Route: 042
     Dates: start: 20150106
  5. BONVIVA [Suspect]
     Active Substance: IBANDRONATE SODIUM
     Dosage: 6TH DOSE WAS ADMINISTERED
     Route: 042
     Dates: start: 20150206
  6. TRAMCET [Concomitant]
     Active Substance: ACETAMINOPHEN\TRAMADOL
     Indication: PRODUCT USED FOR UNKNOWN INDICATION
     Route: 048
     Dates: start: 20140804

REACTIONS (1)
  - Osteonecrosis [Not Recovered/Not Resolved]

NARRATIVE: CASE EVENT DATE: 20150120
